FAERS Safety Report 9725540 (Version 1)
Quarter: 2013Q4

REPORT INFORMATION
  Report Type: Spontaneous
  Country: US (occurrence: None)
  Receive Date: 20131202
  Receipt Date: 20131202
  Transmission Date: 20140711
  Serious: Yes (Disabling, Other)
  Sender: FDA-Public Use
  Company Number: None

PATIENT
  Age: 42 Year
  Sex: Male
  Weight: 79.38 kg

DRUGS (6)
  1. CIPROFLOXACIN [Suspect]
     Indication: URINARY TRACT INFECTION
     Dosage: 1 PILL
     Route: 048
     Dates: start: 20130617, end: 20130622
  2. VITAMIN D [Concomitant]
  3. VITAMIN B12 [Concomitant]
  4. MELATONIN [Concomitant]
  5. PROBIOTICS [Concomitant]
  6. VITAMIN C [Concomitant]

REACTIONS (11)
  - Tendon pain [None]
  - Pain [None]
  - Neuropathy peripheral [None]
  - Insomnia [None]
  - Rash [None]
  - Fatigue [None]
  - Urinary incontinence [None]
  - Ill-defined disorder [None]
  - Hypohidrosis [None]
  - Temperature regulation disorder [None]
  - Painful erection [None]
